FAERS Safety Report 10239906 (Version 1)
Quarter: 2014Q2

REPORT INFORMATION
  Report Type: Report from Study
  Country: US (occurrence: US)
  Receive Date: 20140616
  Receipt Date: 20140616
  Transmission Date: 20141212
  Serious: Yes (Hospitalization)
  Sender: FDA-Public Use
  Company Number: US-ABBVIE-14P-163-1244363-00

PATIENT
  Sex: Female
  Weight: 79.45 kg

DRUGS (11)
  1. HUMIRA [Suspect]
     Indication: CROHN^S DISEASE
     Dates: start: 2008, end: 2008
  2. HUMIRA [Suspect]
     Dates: start: 2008, end: 2008
  3. HUMIRA [Suspect]
     Dates: start: 2008, end: 2011
  4. HUMIRA [Suspect]
     Dates: start: 2011, end: 2011
  5. HUMIRA [Suspect]
     Dates: start: 2011, end: 2011
  6. HUMIRA [Suspect]
     Dates: start: 2011, end: 20131225
  7. DIOVAN [Concomitant]
     Indication: BLOOD PRESSURE ABNORMAL
  8. PRILOSEC [Concomitant]
     Indication: GASTROOESOPHAGEAL REFLUX DISEASE
  9. VITAMIN D [Concomitant]
     Indication: VITAMIN SUPPLEMENTATION
  10. VITAMIN B12 [Concomitant]
     Indication: PERNICIOUS ANAEMIA
  11. HYDROCODONE [Concomitant]
     Indication: PAIN

REACTIONS (7)
  - Large intestinal obstruction [Recovered/Resolved]
  - Drug ineffective [Not Recovered/Not Resolved]
  - Crohn^s disease [Not Recovered/Not Resolved]
  - Abdominal pain [Recovered/Resolved]
  - Vomiting [Recovered/Resolved]
  - Myocardial infarction [Recovered/Resolved]
  - Dyspnoea [Recovered/Resolved]
